FAERS Safety Report 11505440 (Version 1)
Quarter: 2015Q3

REPORT INFORMATION
  Report Type: Spontaneous
  Country: US (occurrence: US)
  Receive Date: 20150915
  Receipt Date: 20150915
  Transmission Date: 20151125
  Serious: No
  Sender: FDA-Public Use
  Company Number: US-ROCHE-741215

PATIENT
  Sex: Male
  Weight: 79.4 kg

DRUGS (3)
  1. PEGASYS [Suspect]
     Active Substance: PEGINTERFERON ALFA-2A
     Indication: HEPATITIS C
     Dosage: FORM: PRE-FILLED SYRINGE; WEEK 34 OF THERAPY
     Route: 065
  2. METFORMIN [Concomitant]
     Active Substance: METFORMIN HYDROCHLORIDE
     Indication: DIABETES MELLITUS
     Route: 065
  3. RIBAVIRIN. [Suspect]
     Active Substance: RIBAVIRIN
     Indication: HEPATITIS C
     Dosage: DIVIDED DOSES; WEEK 34 OF THERAPY
     Route: 065

REACTIONS (9)
  - Fatigue [Unknown]
  - Platelet count decreased [Recovering/Resolving]
  - Haematocrit decreased [Recovering/Resolving]
  - Blood sodium decreased [Unknown]
  - Disturbance in attention [Unknown]
  - Myalgia [Recovered/Resolved]
  - Blood potassium decreased [Not Recovered/Not Resolved]
  - Ammonia increased [Unknown]
  - Malaise [Unknown]
